FAERS Safety Report 9916413 (Version 1)
Quarter: 2014Q1

REPORT INFORMATION
  Report Type: Report from Study
  Country: US (occurrence: US)
  Receive Date: 20140221
  Receipt Date: 20140221
  Transmission Date: 20141002
  Serious: Yes (Other)
  Sender: FDA-Public Use
  Company Number: US-MYLANLABS-2014S1003224

PATIENT
  Age: 23 Year
  Sex: Female

DRUGS (2)
  1. AMNESTEEM CAPSULES [Suspect]
     Dates: start: 20130426, end: 201312
  2. AMNESTEEM CAPSULES [Suspect]
     Dates: start: 20130426, end: 201312

REACTIONS (1)
  - Maternal exposure before pregnancy [Not Recovered/Not Resolved]
